FAERS Safety Report 4318174-X (Version None)
Quarter: 2004Q1

REPORT INFORMATION
  Report Type: 
  Country: None (occurrence: None)
  Receive Date: 20040317
  Receipt Date: 20030228
  Transmission Date: 20041129
  Serious: Yes (Other)
  Sender: FDA-Public Use
  Company Number: JP-ROCHE-332949

PATIENT
  Age: 38 Year
  Sex: Female
  Weight: 58.7 kg

DRUGS (2)
  1. TAMIFLU [Suspect]
     Route: 048
     Dates: start: 20030126, end: 20030128
  2. LOXONIN [Concomitant]
     Route: 048
     Dates: start: 20030126, end: 20030128

REACTIONS (2)
  - ABORTION SPONTANEOUS [None]
  - DRUG EXPOSURE DURING PREGNANCY [None]
